FAERS Safety Report 18151297 (Version 1)
Quarter: 2020Q3

REPORT INFORMATION
  Report Type: Spontaneous
  Country: US (occurrence: US)
  Receive Date: 20200814
  Receipt Date: 20200814
  Transmission Date: 20201103
  Serious: No
  Sender: FDA-Public Use
  Company Number: None

PATIENT
  Age: 52 Year
  Sex: Male
  Weight: 96.43 kg

DRUGS (5)
  1. ENOXAPARIN 50MG TWICE DAILY [Concomitant]
     Dates: start: 20200811
  2. LEVOTHYROXINE 100 MCG DAILY [Concomitant]
     Dates: start: 20200812
  3. REMDESIVIR. [Suspect]
     Active Substance: REMDESIVIR
     Indication: COVID-19 PNEUMONIA
     Route: 042
     Dates: start: 20200811, end: 20200814
  4. ALLOPURINOL 100 MG TWICE DAILY [Concomitant]
     Dates: start: 20200811
  5. DEXAMETHASONE 6 MG DAILY [Concomitant]
     Dates: start: 20200812

REACTIONS (1)
  - Alanine aminotransferase increased [None]

NARRATIVE: CASE EVENT DATE: 20200814
